FAERS Safety Report 18441063 (Version 1)
Quarter: 2020Q4

REPORT INFORMATION
  Report Type: Spontaneous
  Country: DE (occurrence: DE)
  Receive Date: 20201029
  Receipt Date: 20201029
  Transmission Date: 20210114
  Serious: Yes (Other)
  Sender: FDA-Public Use
  Company Number: DE-STRIDES ARCOLAB LIMITED-2020SP012912

PATIENT
  Age: 3 Decade
  Sex: Female

DRUGS (2)
  1. TACROLIMUS. [Suspect]
     Active Substance: TACROLIMUS
     Indication: LIVER TRANSPLANT
     Dosage: 5 MILLIGRAM DAILY
     Route: 048
  2. CYCLOSPORIN A [Concomitant]
     Active Substance: CYCLOSPORINE
     Indication: LIVER TRANSPLANT
     Dosage: UNK
     Route: 065

REACTIONS (9)
  - Eczema [Recovered/Resolved]
  - Papule [Recovered/Resolved]
  - Dermatitis atopic [Recovered/Resolved]
  - Blood immunoglobulin E increased [Recovered/Resolved]
  - Nodule [Recovered/Resolved]
  - Lichenification [Recovered/Resolved]
  - Skin abrasion [Recovered/Resolved]
  - Dermatitis exfoliative generalised [Recovered/Resolved]
  - Ichthyosis [Recovered/Resolved]
